FAERS Safety Report 7411841-0 (Version None)
Quarter: 2011Q2

REPORT INFORMATION
  Report Type: 
  Country: None (occurrence: None)
  Receive Date: 20110413
  Receipt Date: 20110401
  Transmission Date: 20111010
  Serious: Yes (Hospitalization)
  Sender: FDA-Public Use
  Company Number: US-JNJFOC-20110401850

PATIENT
  Sex: Female
  Weight: 48.99 kg

DRUGS (2)
  1. RISPERDAL [Suspect]
     Indication: AGITATION
     Route: 048
  2. RISPERDAL [Suspect]
     Indication: ANXIETY
     Route: 048

REACTIONS (2)
  - GASTRIC HAEMORRHAGE [None]
  - ABNORMAL LOSS OF WEIGHT [None]
